FAERS Safety Report 6450461-1 (Version None)
Quarter: 2009Q4

REPORT INFORMATION
  Report Type: 
  Country: None (occurrence: None)
  Receive Date: 20091123
  Receipt Date: 20091118
  Transmission Date: 20100525
  Serious: Yes (Death)
  Sender: FDA-Public Use
  Company Number: CN-BAYER-200939652GPV

PATIENT

DRUGS (1)
  1. NEXAVAR [Suspect]
     Indication: RENAL CELL CARCINOMA

REACTIONS (2)
  - CIRCULATORY COLLAPSE [None]
  - RESPIRATORY FAILURE [None]
